FAERS Safety Report 19478996 (Version 1)
Quarter: 2021Q2

REPORT INFORMATION
  Report Type: Spontaneous
  Country: US (occurrence: US)
  Receive Date: 20210630
  Receipt Date: 20210630
  Transmission Date: 20210717
  Serious: No
  Sender: FDA-Public Use
  Company Number: US-SA-2021SA210768

PATIENT
  Age: 78 Year
  Sex: Female

DRUGS (2)
  1. PREDNISONE. [Concomitant]
     Active Substance: PREDNISONE
     Indication: BLOOD GLUCOSE INCREASED
     Dosage: UNK
     Route: 048
  2. LANTUS SOLOSTAR [Suspect]
     Active Substance: INSULIN GLARGINE
     Indication: BLOOD GLUCOSE INCREASED
     Dosage: UNK
     Route: 065

REACTIONS (2)
  - Device breakage [Unknown]
  - Blood glucose increased [Unknown]
